FAERS Safety Report 6252005-6 (Version None)
Quarter: 2009Q2

REPORT INFORMATION
  Report Type: 
  Country: None (occurrence: None)
  Receive Date: 20090630
  Receipt Date: 20051207
  Transmission Date: 20091009
  Serious: Yes (Death)
  Sender: FDA-Public Use
  Company Number: US-ROCHE-638529

PATIENT
  Sex: Male

DRUGS (11)
  1. ENFUVIRTIDE [Suspect]
     Route: 065
     Dates: start: 20030626, end: 20050613
  2. APTIVUS [Concomitant]
     Dates: start: 20030619
  3. EPIVIR [Concomitant]
     Dates: start: 20050101
  4. KALETRA [Concomitant]
     Dates: start: 20050101
  5. VIREAD [Concomitant]
  6. BIAXIN [Concomitant]
     Dates: start: 20030619, end: 20050613
  7. MYAMBUTOL [Concomitant]
     Dates: start: 20030619, end: 20050613
  8. DAPSONE [Concomitant]
     Dates: start: 20030126, end: 20030710
  9. TETRACYCLINE [Concomitant]
     Dates: start: 20031021, end: 20050613
  10. DIFLUCAN [Concomitant]
     Dates: end: 20050613
  11. ZITHROMAX [Concomitant]
     Dates: end: 20050613

REACTIONS (3)
  - HEPATITIS C [None]
  - LIVER DISORDER [None]
  - RENAL FAILURE [None]
